FAERS Safety Report 15103658 (Version 1)
Quarter: 2018Q3

REPORT INFORMATION
  Report Type: Report from Study
  Country: AU (occurrence: AU)
  Receive Date: 20180703
  Receipt Date: 20180703
  Transmission Date: 20181010
  Serious: Yes (Other)
  Sender: FDA-Public Use
  Company Number: AU-GILEAD-2018-0347459

PATIENT
  Age: 61 Year
  Sex: Female

DRUGS (6)
  1. DACLATASVIR. [Suspect]
     Active Substance: DACLATASVIR
     Indication: CHRONIC HEPATITIS C
     Dosage: UNK
     Route: 065
     Dates: start: 20141121, end: 201505
  2. TACROLIMUS. [Concomitant]
     Active Substance: TACROLIMUS
  3. METFORMIN [Concomitant]
     Active Substance: METFORMIN HYDROCHLORIDE
     Indication: DIABETES MELLITUS
  4. SOFOSBUVIR [Suspect]
     Active Substance: SOFOSBUVIR
     Indication: CHRONIC HEPATITIS C
     Dosage: UNK
     Route: 065
     Dates: start: 20141121, end: 201505
  5. MYCOPHENOLATE [Concomitant]
     Active Substance: MYCOPHENOLIC ACID
  6. MAGMIN [Concomitant]
     Active Substance: MAGNESIUM ASPARTATE
     Indication: HYPOMAGNESAEMIA

REACTIONS (2)
  - Treatment failure [Not Recovered/Not Resolved]
  - Liver transplant [Unknown]

NARRATIVE: CASE EVENT DATE: 20150222
